FAERS Safety Report 9925132 (Version 3)
Quarter: 2014Q3

REPORT INFORMATION
  Report Type: Report from Study
  Country: IT (occurrence: IT)
  Receive Date: 20140226
  Receipt Date: 20140703
  Transmission Date: 20150326
  Serious: Yes (Hospitalization)
  Sender: FDA-Public Use
  Company Number: IT-ROCHE-1350841

PATIENT
  Age: 46 Year
  Sex: Female
  Weight: 53 kg

DRUGS (22)
  1. OBINUTUZUMAB [Suspect]
     Active Substance: OBINUTUZUMAB
     Dosage: C3D1 OF OBINUTUZUMAB AT 1000 MG (PLANNED DOSE : 1000) WITH INFUSION RATE OF 100 (PLANNED RATE : 100)
     Route: 042
     Dates: start: 20140422
  2. CYCLOPHOSPHAMIDE. [Suspect]
     Active Substance: CYCLOPHOSPHAMIDE
     Dosage: FREQUENCY AS PER PROTOCOL: EVERY DAY ON DAY 1, 2 AND 3 OF EACH CYCLE?C1D3 OF CYCLOPHOSPHAMIDE AT 250
     Route: 042
     Dates: start: 20140226
  3. CYCLOPHOSPHAMIDE. [Suspect]
     Active Substance: CYCLOPHOSPHAMIDE
     Dosage: FREQUENCY AS PER PROTOCOL: EVERY DAY ON DAY 1, 2 AND 3 OF EACH CYCLE?C2D2 OF CYCLOPHOSPHAMIDE AT 250
     Route: 042
     Dates: start: 20140325
  4. OBINUTUZUMAB [Suspect]
     Active Substance: OBINUTUZUMAB
     Indication: CHRONIC LYMPHOCYTIC LEUKAEMIA
     Dosage: FREQUENCY AS PER PROTOCOL: DAYS 1/2 SPLIT DOSE, 8 AND 15 OF CYCLE 1, AND ON DAY 1 OF CYCLES 2 TO 6.
     Route: 042
     Dates: start: 20140212
  5. FLUDARABINE [Suspect]
     Active Substance: FLUDARABINE PHOSPHATE
     Dosage: C2D1 OF FLUDARABINE PHOSPHATE AT 25 MG/M2 AT INFUSION RATE OF 75
     Route: 042
     Dates: start: 20140324
  6. CYCLOPHOSPHAMIDE. [Suspect]
     Active Substance: CYCLOPHOSPHAMIDE
     Indication: CHRONIC LYMPHOCYTIC LEUKAEMIA
     Dosage: FREQUENCY AS PER PROTOCOL: EVERY DAY ON DAY 1, 2 AND 3 OF EACH CYCLE?C1D1 AT 250 MG/M2 FROM 12:00 HR
     Route: 042
     Dates: start: 20140212
  7. BACTRIM [Concomitant]
     Active Substance: SULFAMETHOXAZOLE\TRIMETHOPRIM
     Dosage: BACTRIM F
     Route: 048
     Dates: start: 20140225
  8. LEVOFLOXACINE [Concomitant]
     Active Substance: LEVOFLOXACIN
     Route: 048
     Dates: start: 20140506, end: 20140510
  9. OBINUTUZUMAB [Suspect]
     Active Substance: OBINUTUZUMAB
     Dosage: C2D1 OF OBINUTUZUMAB AT 1000 MG (PLANNED DOSE : 1000) WITH INFUSION RATE OF 100 (PLANNED RATE : 100)
     Route: 042
     Dates: start: 20140324
  10. FLUDARABINE [Suspect]
     Active Substance: FLUDARABINE PHOSPHATE
     Dosage: C2D3 OF FLUDARABINE PHOSPHATE AT 25 MG/M2 AT INFUSION RATE OF 75
     Route: 042
     Dates: start: 20140326
  11. CYCLOPHOSPHAMIDE. [Suspect]
     Active Substance: CYCLOPHOSPHAMIDE
     Dosage: FREQUENCY AS PER PROTOCOL: EVERY DAY ON DAY 1, 2 AND 3 OF EACH CYCLE?C1D2 OF CYCLOPHOSPHAMIDE AT 250
     Route: 042
     Dates: start: 20140225
  12. CYCLOPHOSPHAMIDE. [Suspect]
     Active Substance: CYCLOPHOSPHAMIDE
     Dosage: FREQUENCY AS PER PROTOCOL: EVERY DAY ON DAY 1, 2 AND 3 OF EACH CYCLE?C2D1 OF CYCLOPHOSPHAMIDE AT 250
     Route: 042
     Dates: start: 20140324
  13. OBINUTUZUMAB [Suspect]
     Active Substance: OBINUTUZUMAB
     Dosage: C1D2 OF OBINUTUZUMAB AT 975 MG (PLANNED DOSE : 975) WITH INFUSION RATE OF 50 (PLANNED RATE : 50) FRO
     Route: 042
     Dates: start: 20140225
  14. FLUDARABINE [Suspect]
     Active Substance: FLUDARABINE PHOSPHATE
     Indication: CHRONIC LYMPHOCYTIC LEUKAEMIA
     Dosage: FREQUENCY AS PER PROTOCOL: EVERY DAY ON DAY 1, 2 AND 3 OF EACH CYCLE?C1D1 AT 25 MG/M2 FROM 11:00 HR
     Route: 042
     Dates: start: 20140212
  15. FLUDARABINE [Suspect]
     Active Substance: FLUDARABINE PHOSPHATE
     Dosage: C1D2 OF FLUDARABINE PHOSPHATE AT 25 MG/M2 AT INFUSION RATE OF 75
     Route: 042
     Dates: start: 20140225
  16. CYCLOPHOSPHAMIDE. [Suspect]
     Active Substance: CYCLOPHOSPHAMIDE
     Dosage: FREQUENCY AS PER PROTOCOL: EVERY DAY ON DAY 1, 2 AND 3 OF EACH CYCLE?C2D3 OF CYCLOPHOSPHAMIDE AT 250
     Route: 042
     Dates: start: 20140326
  17. ALLOPURINOL. [Concomitant]
     Active Substance: ALLOPURINOL
     Route: 048
     Dates: start: 20140217
  18. ACICLOVIR [Concomitant]
     Active Substance: ACYCLOVIR
     Route: 048
     Dates: start: 20140225
  19. OBINUTUZUMAB [Suspect]
     Active Substance: OBINUTUZUMAB
     Dosage: C1D15 OF OBINUTUZUMAB AT 1000 MG (PLANNED DOSE : 1000) WITH INFUSION RATE OF 100 (PLANNED RATE : 100
     Route: 042
     Dates: start: 20140310
  20. FLUDARABINE [Suspect]
     Active Substance: FLUDARABINE PHOSPHATE
     Dosage: C2D2 OF FLUDARABINE PHOSPHATE AT 25 MG/M2 AT INFUSION RATE OF 75
     Route: 042
     Dates: start: 20140325
  21. FLUDARABINE [Suspect]
     Active Substance: FLUDARABINE PHOSPHATE
     Dosage: C1D3 OF FLUDARABINE PHOSPHATE AT 25 MG/M2 AT INFUSION RATE OF 75
     Route: 042
     Dates: start: 20140226
  22. OBINUTUZUMAB [Suspect]
     Active Substance: OBINUTUZUMAB
     Dosage: C1D8 OF OBINUTUZUMAB AT 1000 MG (PLANNED DOSE : 1000) WITH INFUSION RATE OF 100 (PLANNED RATE : 100)
     Route: 042
     Dates: start: 20140303

REACTIONS (1)
  - Transaminases increased [Recovered/Resolved]

NARRATIVE: CASE EVENT DATE: 20140213
